FAERS Safety Report 10475963 (Version 1)
Quarter: 2014Q3

REPORT INFORMATION
  Report Type: Spontaneous
  Country: DE (occurrence: DE)
  Receive Date: 20140925
  Receipt Date: 20140925
  Transmission Date: 20150326
  Serious: Yes (Hospitalization)
  Sender: FDA-Public Use
  Company Number: DE-TEVA-510491GER

PATIENT
  Age: 81 Year
  Sex: Male
  Weight: 75 kg

DRUGS (3)
  1. IRBESARTAN-RATIOPHARM 150 MG FILMTABLETTEN [Suspect]
     Active Substance: IRBESARTAN
     Indication: HYPERTENSION
     Dosage: 150 MILLIGRAM DAILY;
     Route: 048
     Dates: start: 20140524, end: 20140614
  2. GLIBENCLAMID AL 3.5 [Concomitant]
  3. ASS100 1A PHARMA [Concomitant]

REACTIONS (3)
  - Immobile [Recovering/Resolving]
  - Musculoskeletal stiffness [Recovering/Resolving]
  - Bedridden [Recovering/Resolving]

NARRATIVE: CASE EVENT DATE: 20140524
